FAERS Safety Report 10195644 (Version 1)
Quarter: 2014Q2

REPORT INFORMATION
  Report Type: Report from Study
  Country: GB (occurrence: GB)
  Receive Date: 20140527
  Receipt Date: 20140527
  Transmission Date: 20141212
  Serious: Yes (Death, Hospitalization, Other)
  Sender: FDA-Public Use
  Company Number: GB-ROCHE-1408067

PATIENT
  Age: 82 Year
  Sex: Male

DRUGS (10)
  1. RANIBIZUMAB [Suspect]
     Indication: AGE-RELATED MACULAR DEGENERATION
     Route: 050
     Dates: start: 20090508
  2. RANIBIZUMAB [Suspect]
     Route: 050
     Dates: start: 20111012
  3. METFORMIN [Concomitant]
     Route: 065
     Dates: start: 20080304
  4. GLIPIZIDE [Concomitant]
     Route: 065
     Dates: start: 20050403
  5. RAMIPRIL [Concomitant]
     Route: 065
     Dates: start: 20060428
  6. ATENOLOL [Concomitant]
     Route: 065
     Dates: start: 19990607
  7. FUROSEMIDE [Concomitant]
     Route: 065
     Dates: start: 20070116
  8. AMLODIPINE [Concomitant]
     Route: 065
     Dates: start: 20050706
  9. ALLOPURINOL [Concomitant]
     Route: 065
     Dates: start: 20100104
  10. ASPIRIN [Concomitant]
     Route: 065
     Dates: start: 20060704

REACTIONS (5)
  - Death [Fatal]
  - Pelvic fracture [Recovering/Resolving]
  - Fall [Unknown]
  - Renal failure acute [Unknown]
  - Microcytic anaemia [Recovered/Resolved]
